FAERS Safety Report 6973367-8 (Version None)
Quarter: 2010Q3

REPORT INFORMATION
  Report Type: 
  Country: None (occurrence: None)
  Receive Date: 20100909
  Receipt Date: 20100830
  Transmission Date: 20110219
  Serious: Yes (Other)
  Sender: FDA-Public Use
  Company Number: CA-JNJFOC-20100900363

PATIENT
  Sex: Male
  Weight: 74 kg

DRUGS (7)
  1. REMICADE [Suspect]
     Indication: RHEUMATOID ARTHRITIS
     Dosage: 52 INFUSIONS
     Route: 042
  2. REMICADE [Suspect]
     Dosage: 56TH INFUSION
     Route: 042
  3. REMICADE [Suspect]
     Route: 042
  4. DIDROCAL [Concomitant]
  5. PREVACID [Concomitant]
  6. METHOTREXATE [Concomitant]
     Route: 048
  7. PREDNISONE [Concomitant]
     Route: 048

REACTIONS (2)
  - CATARACT [None]
  - PROSTATE CANCER [None]
